FAERS Safety Report 5592350-0 (Version None)
Quarter: 2008Q1

REPORT INFORMATION
  Report Type: 
  Country: None (occurrence: None)
  Receive Date: 20080111
  Receipt Date: 20071226
  Transmission Date: 20080703
  Serious: Yes (Other)
  Sender: FDA-Public Use
  Company Number: 2007JP005799

PATIENT
  Age: 22 Year
  Sex: Male

DRUGS (2)
  1. PROGRAF [Suspect]
     Indication: SMALL INTESTINE TRANSPLANT
  2. ANTI-IL-2 RECEPTOR ANTIBODY [Concomitant]

REACTIONS (3)
  - DEHYDRATION [None]
  - ELECTROLYTE IMBALANCE [None]
  - RENAL IMPAIRMENT [None]
